FAERS Safety Report 11367649 (Version 1)
Quarter: 2015Q3

REPORT INFORMATION
  Report Type: Spontaneous
  Country: US (occurrence: US)
  Receive Date: 20150811
  Receipt Date: 20150811
  Transmission Date: 20151125
  Serious: No
  Sender: FDA-Public Use
  Company Number: US-ELI_LILLY_AND_COMPANY-US201204002779

PATIENT
  Age: 67 Year
  Sex: Male
  Weight: 87 kg

DRUGS (3)
  1. AXIRON [Suspect]
     Active Substance: TESTOSTERONE
     Indication: HYPOGONADISM
     Dosage: 60 MG, UNK, TWO PUMPS UNDER EACH ARM
     Route: 050
     Dates: start: 20110926, end: 20120328
  2. CIALIS [Concomitant]
     Active Substance: TADALAFIL
     Dosage: 10 MG, UNK
  3. XANAX [Concomitant]
     Active Substance: ALPRAZOLAM
     Dosage: 0.25 UNITS NOT KNOWN

REACTIONS (2)
  - Drug ineffective [Recovered/Resolved]
  - Hair growth abnormal [Recovered/Resolved]
